FAERS Safety Report 12770398 (Version 1)
Quarter: 2016Q3

REPORT INFORMATION
  Report Type: Spontaneous
  Country: US (occurrence: US)
  Receive Date: 20160919
  Receipt Date: 20160919
  Transmission Date: 20161109
  Serious: No
  Sender: FDA-Public Use
  Company Number: None

PATIENT
  Age: 77 Year
  Sex: Female

DRUGS (1)
  1. PROLIA [Suspect]
     Active Substance: DENOSUMAB
     Dosage: EVERY 6 MONTH
     Route: 058
     Dates: start: 20160919

REACTIONS (1)
  - Blood cholesterol increased [None]

NARRATIVE: CASE EVENT DATE: 20160919
